FAERS Safety Report 8074944-6 (Version None)
Quarter: 2012Q1

REPORT INFORMATION
  Report Type: 
  Country: None (occurrence: None)
  Receive Date: 20120127
  Receipt Date: 20120118
  Transmission Date: 20120608
  Serious: Yes (Hospitalization)
  Sender: FDA-Public Use
  Company Number: US-BIOGENIDEC-2010BI004111

PATIENT
  Sex: Female

DRUGS (4)
  1. TYSABRI [Suspect]
     Indication: MULTIPLE SCLEROSIS
     Route: 042
     Dates: start: 20100121, end: 20100121
  2. PAIN KILLER (NOS) [Concomitant]
  3. A LOT OF OTHER PILLS (NOS) [Concomitant]
  4. TYSABRI [Suspect]
     Route: 042
     Dates: start: 20101015, end: 20110901

REACTIONS (19)
  - MULTIPLE SCLEROSIS [None]
  - HYPOKALAEMIA [None]
  - URINARY TRACT INFECTION [None]
  - HYPOAESTHESIA [None]
  - MALAISE [None]
  - MENTAL IMPAIRMENT [None]
  - FATIGUE [None]
  - INFLUENZA [None]
  - COGNITIVE DISORDER [None]
  - PARAESTHESIA [None]
  - ADVERSE EVENT [None]
  - MUSCLE SPASMS [None]
  - PAIN [None]
  - OROPHARYNGEAL PAIN [None]
  - MIGRAINE [None]
  - CLOSTRIDIAL INFECTION [None]
  - THROMBOSIS [None]
  - MULTIPLE SCLEROSIS RELAPSE [None]
  - BACK PAIN [None]
